FAERS Safety Report 4318493-7 (Version None)
Quarter: 2004Q1

REPORT INFORMATION
  Report Type: 
  Country: None (occurrence: None)
  Receive Date: 20040316
  Receipt Date: 20040316
  Transmission Date: 20041129
  Serious: Yes (Other)
  Sender: FDA-Public Use
  Company Number: None

PATIENT
  Age: 56 Year
  Sex: Female

DRUGS (4)
  1. ESCLIM [Suspect]
     Indication: POSTMENOPAUSE
     Dosage: 0.1 MG BIW PATCH
     Dates: start: 20030908, end: 20031229
  2. MVI TABS [Concomitant]
  3. FEXOFENADINE HCL [Concomitant]
  4. CALCIUM/VITAMIN D+ [Concomitant]

REACTIONS (2)
  - APPLICATION SITE REACTION [None]
  - DERMATITIS CONTACT [None]
